FAERS Safety Report 24965017 (Version 1)
Quarter: 2025Q1

REPORT INFORMATION
  Report Type: Spontaneous
  Country: US (occurrence: None)
  Receive Date: 20250213
  Receipt Date: 20250213
  Transmission Date: 20250409
  Serious: Yes (Hospitalization)
  Sender: FDA-CTU
  Company Number: None

PATIENT
  Age: 68 Year
  Sex: Male
  Weight: 79.2 kg

DRUGS (5)
  1. FLUOROURACIL [Suspect]
     Active Substance: FLUOROURACIL
     Dates: end: 20250201
  2. CAMPTOSAR [Suspect]
     Active Substance: IRINOTECAN HYDROCHLORIDE
     Dates: end: 20250130
  3. LEUCOVORIN CALCIUM [Suspect]
     Active Substance: LEUCOVORIN CALCIUM
     Dates: end: 20250130
  4. NIVOLUMAB [Suspect]
     Active Substance: NIVOLUMAB
     Dates: end: 20250130
  5. ELOXATIN [Suspect]
     Active Substance: OXALIPLATIN
     Dates: end: 20250130

REACTIONS (5)
  - Eye pain [None]
  - Erythema [None]
  - Swelling [None]
  - Nausea [None]
  - Hypokalaemia [None]

NARRATIVE: CASE EVENT DATE: 20250204
